FAERS Safety Report 4975160-4 (Version None)
Quarter: 2006Q2

REPORT INFORMATION
  Report Type: 
  Country: None (occurrence: None)
  Receive Date: 20060418
  Receipt Date: 20060418
  Transmission Date: 20061013
  Serious: Yes (Hospitalization)
  Sender: FDA-Public Use
  Company Number: None

PATIENT
  Age: 69 Year
  Sex: Male
  Weight: 91.173 kg

DRUGS (3)
  1. BEVACIZUMAB    15MG/KG [Suspect]
     Indication: GASTRIC CANCER
     Dosage: BEVACIZUMAB   1380MG    IV DRIP (EVERY 21 DAYS)
     Route: 041
     Dates: start: 20050725, end: 20060403
  2. OXALIPATIN          75MG/M2 [Suspect]
     Indication: GASTRIC CANCER
     Dosage: OXALIPLATIN   163MG  IV DRIP  (EVERY 21 DAYS)
     Route: 041
     Dates: start: 20050725, end: 20060403
  3. DOCETAXEL [Suspect]
     Indication: GASTRIC CANCER
     Dosage: DOCETAXEL  152MG   IV DRIP  (EVERY 21 DAYS)
     Route: 041
     Dates: start: 20050725, end: 20060403

REACTIONS (1)
  - FEBRILE NEUTROPENIA [None]
